FAERS Safety Report 7644318-8 (Version None)
Quarter: 2011Q3

REPORT INFORMATION
  Report Type: 
  Country: None (occurrence: None)
  Receive Date: 20110729
  Receipt Date: 20110719
  Transmission Date: 20111222
  Serious: Yes (Hospitalization)
  Sender: FDA-Public Use
  Company Number: JP-NOVOPROD-332132

PATIENT
  Age: 64 Year
  Sex: Male
  Weight: 87 kg

DRUGS (3)
  1. LANSOPRAZOLE [Concomitant]
     Dosage: 30 MG, QD
     Route: 048
  2. VICTOZA [Suspect]
     Indication: DIABETES MELLITUS
     Dosage: 0.3 MG, QD
     Route: 058
     Dates: start: 20110704
  3. LIPITOR [Concomitant]
     Dosage: 10 MG, QD
     Route: 048

REACTIONS (1)
  - DIABETIC KETOACIDOSIS [None]
